FAERS Safety Report 12247320 (Version 1)
Quarter: 2016Q2

REPORT INFORMATION
  Report Type: Report from Study
  Country: TR (occurrence: TR)
  Receive Date: 20160407
  Receipt Date: 20160407
  Transmission Date: 20160815
  Serious: Yes (Other)
  Sender: FDA-Public Use
  Company Number: PHHY2016TR044706

PATIENT
  Age: 13 Year
  Sex: Female
  Weight: 47 kg

DRUGS (1)
  1. SOMATROPIN [Suspect]
     Active Substance: SOMATROPIN
     Indication: GROWTH HORMONE DEFICIENCY
     Dosage: 30 IU, QD
     Route: 058
     Dates: start: 20130822, end: 20160328

REACTIONS (2)
  - Hormone level abnormal [Not Recovered/Not Resolved]
  - Blood insulin abnormal [Not Recovered/Not Resolved]

NARRATIVE: CASE EVENT DATE: 20160328
